FAERS Safety Report 9600559 (Version 1)
Quarter: 2013Q4

REPORT INFORMATION
  Report Type: Spontaneous
  Country: US (occurrence: US)
  Receive Date: 20131004
  Receipt Date: 20131004
  Transmission Date: 20140711
  Serious: No
  Sender: FDA-Public Use
  Company Number: US-AMGEN-USASP2013035856

PATIENT
  Age: 70 Year
  Sex: Female

DRUGS (11)
  1. ENBREL [Suspect]
     Indication: RHEUMATOID ARTHRITIS
     Dosage: 50 MG, QWK
     Route: 058
  2. PANTOPRAZOLE [Concomitant]
     Dosage: 20 MG, UNK
  3. ZOLPIDEM [Concomitant]
     Dosage: 5 MG, UNK
  4. FUROSEMIDE [Concomitant]
     Dosage: 20 MG, UNK
  5. AMLODIPINE [Concomitant]
     Dosage: 2.5 MG, UNK
  6. COUMADIN                           /00014802/ [Concomitant]
     Dosage: 1 MG, UNK
  7. LIPITOR [Concomitant]
     Dosage: 10 MG, UNK
  8. CITALOPRAM [Concomitant]
     Dosage: 10 MG, UNK
  9. METHOTREXATE [Concomitant]
     Dosage: 50MG/2ML
  10. FOLIC ACID [Concomitant]
     Dosage: UNK
  11. LEVOCETIRIZINE [Concomitant]
     Dosage: 5 MG, UNK

REACTIONS (1)
  - Drug effect decreased [Unknown]
